FAERS Safety Report 7216520-0 (Version None)
Quarter: 2011Q1

REPORT INFORMATION
  Report Type: 
  Country: None (occurrence: None)
  Receive Date: 20110107
  Receipt Date: 20110105
  Transmission Date: 20110831
  Serious: Yes (Hospitalization)
  Sender: FDA-Public Use
  Company Number: US-AMGEN-USASP2010010583

PATIENT

DRUGS (2)
  1. ENBREL [Suspect]
     Dates: start: 20060701, end: 20101201
  2. ENBREL [Suspect]
     Indication: PSORIASIS
     Dosage: 50 MG, QWK
     Dates: start: 20060701

REACTIONS (2)
  - SCREAMING [None]
  - HAEMATOCHEZIA [None]
